FAERS Safety Report 4893798-X (Version None)
Quarter: 2006Q1

REPORT INFORMATION
  Report Type: 
  Country: None (occurrence: None)
  Receive Date: 20060127
  Receipt Date: 20060120
  Transmission Date: 20060701
  Serious: Yes (Hospitalization)
  Sender: FDA-Public Use
  Company Number: 2006AP00382

PATIENT
  Age: 31126 Day
  Sex: Female

DRUGS (3)
  1. XYLOCAINE [Suspect]
     Dates: start: 20051110, end: 20051110
  2. MARCAIN SPINAL HEAVY [Suspect]
     Route: 037
     Dates: start: 20051110, end: 20051110
  3. HYALASE [Suspect]
     Dates: start: 20051110, end: 20051110

REACTIONS (3)
  - CONJUNCTIVAL OEDEMA [None]
  - LOCAL SWELLING [None]
  - PERIORBITAL OEDEMA [None]
